FAERS Safety Report 19964729 (Version 6)
Quarter: 2024Q4

REPORT INFORMATION
  Report Type: Spontaneous
  Country: US (occurrence: US)
  Receive Date: 20211018
  Receipt Date: 20241223
  Transmission Date: 20250115
  Serious: No
  Sender: PFIZER
  Company Number: US-PFIZER INC-2021407646

PATIENT
  Age: 74 Year
  Sex: Female
  Weight: 90.703 kg

DRUGS (21)
  1. XELJANZ XR [Suspect]
     Active Substance: TOFACITINIB CITRATE
     Indication: Rheumatoid arthritis
     Dosage: 11 MG
     Route: 048
     Dates: start: 2020
  2. XELJANZ XR [Suspect]
     Active Substance: TOFACITINIB CITRATE
     Dosage: 11 MG, 1X/DAY
     Route: 048
  3. PROVENTIL HFA [Concomitant]
     Active Substance: ALBUTEROL SULFATE
     Indication: Wheezing
     Dosage: 2 DF, AS NEEDED (INHALE 2 PUFFS INTO LUNGS EVERY 4 HOURS AS NEEDED)
     Dates: start: 20240426
  4. NORVASC [Concomitant]
     Active Substance: AMLODIPINE BESYLATE
     Dosage: 2.5 MG
     Route: 048
     Dates: start: 20230524
  5. LIPITOR [Concomitant]
     Active Substance: ATORVASTATIN CALCIUM
     Dosage: 20 MG, DAILY
     Route: 048
  6. TESSALON [Concomitant]
     Active Substance: BENZONATATE
     Indication: Cough
     Dosage: 100 MG, 3X/DAY (AS NEEDED)
     Dates: start: 20240508
  7. TESSALON [Concomitant]
     Active Substance: BENZONATATE
     Dosage: 100 MG, 3X/DAY (AS NEEDED)
     Dates: start: 20240530
  8. CALCIUM\VITAMIN D [Concomitant]
     Active Substance: CALCIUM\VITAMIN D
     Dosage: 1 DF, 2X/DAY (WITH MEALS)
     Route: 048
  9. CHOLECALCIFEROL [Concomitant]
     Active Substance: CHOLECALCIFEROL
     Dosage: 50 UG (2000 UT)
     Route: 048
  10. ENBREL [Concomitant]
     Active Substance: ETANERCEPT
     Dosage: 50 MG, WEEKLY
     Route: 058
     Dates: start: 20240717
  11. PEPCID [Concomitant]
     Active Substance: FAMOTIDINE
     Indication: Dyspepsia
     Dosage: 20 MG, AS NEEDED
     Route: 048
  12. FLONASE ALLERGY RELIEF [Concomitant]
     Active Substance: FLUTICASONE PROPIONATE
     Dosage: UNK UNK, DAILY  (2 SPRAY DAILY IN EACH NOSTRIL)
     Route: 045
     Dates: start: 20240604
  13. FLONASE [Concomitant]
     Active Substance: FLUTICASONE PROPIONATE
     Dosage: UNK, DAILY (INSTILL 1-2 IN EACH NOSTRIL DAILY)
  14. FOLVITE [Concomitant]
     Active Substance: FOLIC ACID
     Dosage: 1 MG, DAILY
     Route: 048
  15. NEURONTIN [Concomitant]
     Active Substance: GABAPENTIN
     Indication: Analgesic therapy
     Dosage: 100 MG, 2X/DAY (AS NEEDED)
     Dates: start: 20240719
  16. COZAAR [Concomitant]
     Active Substance: LOSARTAN POTASSIUM
     Dosage: 100 MG, DAILY
     Route: 048
  17. MAGNESIUM [Concomitant]
     Active Substance: MAGNESIUM
     Dosage: 250 MG, 2X/DAY
     Route: 048
     Dates: start: 20240610
  18. PRILOSEC [Concomitant]
     Active Substance: OMEPRAZOLE MAGNESIUM
     Dosage: 40 MG, DAILY
     Route: 048
  19. ULTRAM [Concomitant]
     Active Substance: TRAMADOL HYDROCHLORIDE
     Indication: Pain
     Dosage: 50 MG, 3X/DAY
     Route: 048
     Dates: start: 20240610
  20. DEXAMETHASONE [Concomitant]
     Active Substance: DEXAMETHASONE
     Dosage: UNK (TAKE 4 TAB FOR 3 DAYS, 3 TAB FOR 3 DAYS, 2 TAB FOR 3 DAYS, 1 TAB FOR 3 DAYS)
     Dates: start: 20240816
  21. PROLIA [Concomitant]
     Active Substance: DENOSUMAB
     Indication: Osteoporosis
     Dosage: UNK
     Dates: start: 202404

REACTIONS (11)
  - Therapeutic response unexpected [Unknown]
  - Therapeutic product effect incomplete [Unknown]
  - Musculoskeletal discomfort [Recovering/Resolving]
  - Visual impairment [Unknown]
  - Glomerular filtration rate decreased [Unknown]
  - Blood parathyroid hormone increased [Unknown]
  - Blood urea increased [Unknown]
  - Body temperature decreased [Unknown]
  - Blood glucose increased [Unknown]
  - Bronchitis [Unknown]
  - Condition aggravated [Unknown]

NARRATIVE: CASE EVENT DATE: 20240705
